FAERS Safety Report 21363555 (Version 1)
Quarter: 2022Q3

REPORT INFORMATION
  Report Type: Report from Study
  Country: MX (occurrence: MX)
  Receive Date: 20220922
  Receipt Date: 20220922
  Transmission Date: 20221027
  Serious: Yes (Other)
  Sender: FDA-Public Use
  Company Number: MX-NOVARTISPH-NVSC2022MX213711

PATIENT
  Sex: Male
  Weight: 84 kg

DRUGS (2)
  1. HYDROCHLOROTHIAZIDE\VALSARTAN [Suspect]
     Active Substance: HYDROCHLOROTHIAZIDE\VALSARTAN
     Indication: Hypertension
     Dosage: 1 DOSAGE FORM, QD, (160/12.5 MG)
     Route: 048
     Dates: start: 2012
  2. HYDROCHLOROTHIAZIDE\VALSARTAN [Suspect]
     Active Substance: HYDROCHLOROTHIAZIDE\VALSARTAN
     Dosage: 1 DOSAGE FORM, BID, (80/12.5 MG)
     Route: 048

REACTIONS (4)
  - Thrombosis [Recovered/Resolved with Sequelae]
  - Pain in extremity [Unknown]
  - Ill-defined disorder [Recovering/Resolving]
  - Inappropriate schedule of product administration [Unknown]
